FAERS Safety Report 9126695 (Version 1)
Quarter: 2013Q1

REPORT INFORMATION
  Report Type: Spontaneous
  Country: US (occurrence: None)
  Receive Date: 20130130
  Receipt Date: 20130130
  Transmission Date: 20140127
  Serious: Yes (Death)
  Sender: FDA-Public Use
  Company Number: B0859372A

PATIENT
  Age: 57 Year
  Sex: Female

DRUGS (7)
  1. PAROXETINE HYDROCHLORIDE [Suspect]
     Indication: PRODUCT USED FOR UNKNOWN INDICATION
     Dosage: UNK  /  UNK  /  ORAL?UNK
     Route: 048
  2. DIPHENHYDRAMINE [Suspect]
     Indication: PRODUCT USED FOR UNKNOWN INDICATION
     Dosage: UNK  /  UNK  /  ORAL?UNK
     Route: 048
  3. HYDROCODONE + PARACETAMOL [Suspect]
     Indication: PRODUCT USED FOR UNKNOWN INDICATION
     Dosage: UNK  /  UNK  /  ORAL?UNK
     Route: 048
  4. TRAMADOL HYDROCHLORIDE [Suspect]
     Indication: PRODUCT USED FOR UNKNOWN INDICATION
     Dosage: UNK  /  UNK  /  ORAL?UNK
     Route: 048
  5. HYOSCYAMINE [Suspect]
     Indication: PRODUCT USED FOR UNKNOWN INDICATION
     Dosage: UNK  /  UNK  /  ORAL?UNK
     Route: 048
  6. CYCLOBENZAPRINE HCL [Suspect]
     Indication: PRODUCT USED FOR UNKNOWN INDICATION
     Dosage: UNK  /  UNK  /  ORAL?UNK
     Route: 048
  7. DILTIAZEM HYDROCHLORIDE (FORMULATION UNKNOWN) (DILTIAZEM HYDROCHLORIDE) [Suspect]
     Indication: PRODUCT USED FOR UNKNOWN INDICATION
     Dosage: UNK  /  UNK  /  UNKNOWN?UNK

REACTIONS (1)
  - Drug abuse [None]
